FAERS Safety Report 8395890 (Version 2)
Quarter: 2013Q1

REPORT INFORMATION
  Report Type: Spontaneous
  Country: US (occurrence: US)
  Receive Date: 20120208
  Receipt Date: 20130125
  Transmission Date: 20140127
  Serious: Yes (Hospitalization, Other)
  Sender: FDA-Public Use
  Company Number: US-BAYER-2012-011004

PATIENT
  Age: 33 Year
  Sex: Female
  Weight: 85.71 kg

DRUGS (8)
  1. YAZ [Suspect]
     Indication: ACNE
     Dosage: UNK
     Dates: start: 200811, end: 201009
  2. YAZ [Suspect]
     Indication: PREMENSTRUAL DYSPHORIC DISORDER
  3. YAZ [Suspect]
     Indication: PREMENSTRUAL SYNDROME
  4. KAPIDEX [Concomitant]
     Dosage: 60 MG, ONCE DAILY
     Route: 048
     Dates: start: 20100603
  5. DIFLUCAN [Concomitant]
     Dosage: UNK
     Dates: start: 20100913
  6. Z-PAK [Concomitant]
     Dosage: UNK
     Route: 048
     Dates: start: 201010
  7. DORYX [Concomitant]
     Dosage: 150 MG, BID
     Route: 048
     Dates: start: 201010
  8. ZIANA [Concomitant]
     Dosage: 1.2-0.025% 1 APP ONCE A DAY AT BEDTIME

REACTIONS (5)
  - Focal nodular hyperplasia [None]
  - Cholecystectomy [None]
  - Cholecystitis chronic [None]
  - Injury [None]
  - Pain [None]
